FAERS Safety Report 5936247-2 (Version None)
Quarter: 2008Q4

REPORT INFORMATION
  Report Type: 
  Country: None (occurrence: None)
  Receive Date: 20081030
  Receipt Date: 20080613
  Transmission Date: 20090506
  Serious: No
  Sender: FDA-Public Use
  Company Number: A0726581A

PATIENT
  Age: 57 Year
  Sex: Male

DRUGS (2)
  1. SEREVENT [Suspect]
     Dosage: 1PUFF TWICE PER DAY
     Route: 055
  2. PRILOSEC [Concomitant]

REACTIONS (6)
  - ENERGY INCREASED [None]
  - INSOMNIA [None]
  - MIGRAINE [None]
  - MIGRAINE WITH AURA [None]
  - MYODESOPSIA [None]
  - PRODUCT QUALITY ISSUE [None]
